FAERS Safety Report 12210780 (Version 1)
Quarter: 2016Q1

REPORT INFORMATION
  Report Type: Spontaneous
  Country: US (occurrence: None)
  Receive Date: 20160324
  Receipt Date: 20160324
  Transmission Date: 20160526
  Serious: Yes (Life-Threatening)
  Sender: FDA-Public Use
  Company Number: None

PATIENT
  Age: 69 Year
  Sex: Male
  Weight: 84 kg

DRUGS (6)
  1. TICAGRELOR (BRILINTA) [Concomitant]
  2. ASPIRIN (ECOTRIN) [Concomitant]
  3. LOSARTAN (COZAAR) [Concomitant]
  4. APIXABAN [Suspect]
     Active Substance: APIXABAN
     Indication: CEREBROVASCULAR ACCIDENT PROPHYLAXIS
     Dosage: 1 TABLET BID ORAL
     Route: 048
  5. AMBIEN [Concomitant]
     Active Substance: ZOLPIDEM TARTRATE
  6. DIAZEPAM (VALIUM) 5 MG [Concomitant]
     Active Substance: DIAZEPAM

REACTIONS (6)
  - Osteomyelitis [None]
  - Neutropenia [None]
  - Thalamic infarction [None]
  - Staphylococcal infection [None]
  - Bacteraemia [None]
  - Anaemia [None]

NARRATIVE: CASE EVENT DATE: 20160320
